FAERS Safety Report 6274936-3 (Version None)
Quarter: 2009Q3

REPORT INFORMATION
  Report Type: 
  Country: None (occurrence: None)
  Receive Date: 20090717
  Receipt Date: 20090701
  Transmission Date: 20100115
  Serious: Yes (Hospitalization)
  Sender: FDA-Public Use
  Company Number: 321347

PATIENT
  Age: 24 Year
  Sex: Female

DRUGS (4)
  1. DACARBAZINE [Suspect]
     Indication: HODGKIN'S DISEASE
     Dates: start: 20090320, end: 20090506
  2. BLEOMYCIN SULFATE [Suspect]
     Indication: HODGKIN'S DISEASE
     Dates: start: 20090320, end: 20090506
  3. DOXORUBICIN HCL [Suspect]
     Indication: HODGKIN'S DISEASE
     Dates: start: 20090320, end: 20090506
  4. VINBLASTINE SULFATE [Suspect]
     Indication: HODGKIN'S DISEASE
     Dates: start: 20090320, end: 20090506

REACTIONS (8)
  - BODY TEMPERATURE INCREASED [None]
  - HAEMATOCRIT DECREASED [None]
  - HAEMOGLOBIN DECREASED [None]
  - LUNG INFILTRATION [None]
  - LYMPHOCYTE COUNT ABNORMAL [None]
  - PLATELET COUNT DECREASED [None]
  - RED BLOOD CELL COUNT DECREASED [None]
  - WHITE BLOOD CELL COUNT DECREASED [None]
